FAERS Safety Report 18216567 (Version 1)
Quarter: 2020Q3

REPORT INFORMATION
  Report Type: Spontaneous
  Country: US (occurrence: US)
  Receive Date: 20200831
  Receipt Date: 20200831
  Transmission Date: 20201103
  Serious: Yes (Hospitalization)
  Sender: FDA-Public Use
  Company Number: None

PATIENT
  Age: 61 Year
  Sex: Male
  Weight: 95 kg

DRUGS (1)
  1. SULFAMETHOXAZOLE/TRIMETHOPRIM (SULFAMETHOXAZOLE 800MG/TRIMETHOPRIM 160 [Suspect]
     Active Substance: SULFAMETHOXAZOLE\TRIMETHOPRIM
     Route: 048
     Dates: start: 20200601, end: 20200611

REACTIONS (5)
  - Pancytopenia [None]
  - Neutropenia [None]
  - Blood creatine phosphokinase increased [None]
  - Neutrophil count decreased [None]
  - Toxicity to various agents [None]

NARRATIVE: CASE EVENT DATE: 20200617
